FAERS Safety Report 4297648-4 (Version None)
Quarter: 2004Q1

REPORT INFORMATION
  Report Type: 
  Country: None (occurrence: None)
  Receive Date: 20040213
  Receipt Date: 20040204
  Transmission Date: 20041129
  Serious: Yes (Hospitalization)
  Sender: FDA-Public Use
  Company Number: 2004-06634

PATIENT
  Sex: Male

DRUGS (2)
  1. HEPSERA [Suspect]
     Indication: HEPATITIS B
     Dosage: 10 MG QD PO
     Route: 048
     Dates: start: 20030901
  2. HEPSERA [Suspect]
     Indication: HEPATITIS B
     Dosage: 10 MG QD PO
     Route: 048
     Dates: start: 20030825, end: 20030901

REACTIONS (1)
  - PANCREATITIS [None]
